FAERS Safety Report 19186405 (Version 1)
Quarter: 2021Q2

REPORT INFORMATION
  Report Type: Spontaneous
  Country: IT (occurrence: IT)
  Receive Date: 20210427
  Receipt Date: 20210427
  Transmission Date: 20210717
  Serious: Yes (Disabling)
  Sender: FDA-Public Use
  Company Number: IT-BAYER-2021-124874

PATIENT
  Age: 28 Year
  Sex: Female
  Weight: 92 kg

DRUGS (1)
  1. KYLEENA [Suspect]
     Active Substance: LEVONORGESTREL
     Indication: CONTRACEPTION
     Dosage: 17.5 ?G PER DAY, CONTINUOUSLY
     Route: 015
     Dates: start: 20191209, end: 20210402

REACTIONS (4)
  - Haemoperitoneum [Recovered/Resolved with Sequelae]
  - Ectopic pregnancy with contraceptive device [Recovered/Resolved with Sequelae]
  - Drug ineffective [Recovered/Resolved with Sequelae]
  - Ruptured ectopic pregnancy [Recovered/Resolved with Sequelae]

NARRATIVE: CASE EVENT DATE: 20210331
